FAERS Safety Report 4897994-7 (Version None)
Quarter: 2006Q1

REPORT INFORMATION
  Report Type: 
  Country: None (occurrence: None)
  Receive Date: 20060201
  Receipt Date: 20051207
  Transmission Date: 20060701
  Serious: Yes (Other)
  Sender: FDA-Public Use
  Company Number: GB-SANOFI-SYNTHELABO-A01200508644

PATIENT
  Sex: Male
  Weight: 74.7 kg

DRUGS (8)
  1. PLAVIX [Suspect]
     Indication: ANTIPLATELET THERAPY
     Route: 048
     Dates: start: 20051006
  2. ATORVASTATIN CALCIUM [Concomitant]
     Indication: LIPIDS ABNORMAL
     Route: 065
     Dates: start: 20060106
  3. DILTIAZEM MR [Concomitant]
     Indication: ANGINA PECTORIS
     Route: 065
     Dates: start: 20051117
  4. GAVISCON [Concomitant]
     Indication: DYSPEPSIA
     Route: 065
     Dates: start: 20051117
  5. MOXOMAX XI [Concomitant]
     Indication: ASTHMA
     Route: 065
     Dates: start: 20051024
  6. SYMBICORT [Concomitant]
     Indication: ASTHMA
     Dosage: UNK
     Route: 055
     Dates: start: 20050613
  7. TERBULINE [Concomitant]
     Indication: ASTHMA
     Dosage: UNK
     Route: 065
     Dates: start: 20040227
  8. ASPIRIN [Concomitant]
     Indication: ANTIPLATELET THERAPY
     Route: 065
     Dates: start: 20040227

REACTIONS (1)
  - MEDICATION RESIDUE [None]
